FAERS Safety Report 5456154-1 (Version None)
Quarter: 2007Q3

REPORT INFORMATION
  Report Type: 
  Country: None (occurrence: None)
  Receive Date: 20070918
  Receipt Date: 20070914
  Transmission Date: 20080115
  Serious: Yes (Other)
  Sender: FDA-Public Use
  Company Number: US-ASTRAZENECA-2007UW21794

PATIENT
  Sex: Female

DRUGS (6)
  1. CRESTOR [Suspect]
     Route: 048
  2. PREMPRO [Concomitant]
  3. EFFEXOR [Concomitant]
  4. MICARDIS [Concomitant]
  5. ALLEGRA [Concomitant]
  6. NASONEX [Concomitant]

REACTIONS (1)
  - MULTIPLE FRACTURES [None]
